FAERS Safety Report 8972390 (Version 1)
Quarter: 2012Q4

REPORT INFORMATION
  Report Type: Spontaneous
  Country: US (occurrence: None)
  Receive Date: 20121217
  Receipt Date: 20121217
  Transmission Date: 20130627
  Serious: Yes (Life-Threatening)
  Sender: FDA-Public Use
  Company Number: None

PATIENT
  Age: 63 Year
  Sex: Male
  Weight: 95.26 kg

DRUGS (4)
  1. HYDROCODONE-ACETAMINOPHEN [Suspect]
     Indication: GALLBLADDER SLUDGE
     Dosage: 1 to 2 tabs every 6 hours po
     Route: 048
     Dates: start: 20121108, end: 20121109
  2. HYDROCODONE-ACETAMINOPHEN [Suspect]
     Indication: GALLBLADDER PAIN
     Dosage: 1 to 2 tabs every 6 hours po
     Route: 048
     Dates: start: 20121108, end: 20121109
  3. HYDROCODONE-ACETAMINOPHEN [Suspect]
     Indication: GALLBLADDER SLUDGE
     Dates: start: 20121207, end: 20121208
  4. HYDROCODONE-ACETAMINOPHEN [Suspect]
     Indication: GALLBLADDER PAIN
     Dates: start: 20121207, end: 20121208

REACTIONS (21)
  - Tinnitus [None]
  - Hair disorder [None]
  - Dry skin [None]
  - Scab [None]
  - Pyrexia [None]
  - Cold sweat [None]
  - Delirium [None]
  - Abnormal dreams [None]
  - Insomnia [None]
  - Middle insomnia [None]
  - Chromaturia [None]
  - Gastrointestinal pain [None]
  - Dry mouth [None]
  - Bladder discomfort [None]
  - Urine flow decreased [None]
  - Gait disturbance [None]
  - Infrequent bowel movements [None]
  - Feeling abnormal [None]
  - Chills [None]
  - Poisoning [None]
  - Major depression [None]
